FAERS Safety Report 12135190 (Version 4)
Quarter: 2016Q2

REPORT INFORMATION
  Report Type: Spontaneous
  Country: US (occurrence: US)
  Receive Date: 20160301
  Receipt Date: 20160603
  Transmission Date: 20160815
  Serious: Yes (Other)
  Sender: FDA-Public Use
  Company Number: US-009507513-1602USA011782

PATIENT
  Sex: Female

DRUGS (4)
  1. TRYPTANOL [Concomitant]
     Active Substance: AMITRIPTYLINE
     Dosage: UNK
     Route: 048
  2. IMPLANON [Suspect]
     Active Substance: ETONOGESTREL
     Indication: CONTRACEPTION
     Dosage: UNK, IN THE LEFT ARM
     Route: 059
     Dates: start: 2012
  3. NEXPLANON [Suspect]
     Active Substance: ETONOGESTREL
     Dosage: UNK, IN THE RIGHT ARM
     Route: 059
     Dates: start: 201511
  4. FIORICET [Concomitant]
     Active Substance: ACETAMINOPHEN\BUTALBITAL\CAFFEINE
     Dosage: UNK

REACTIONS (8)
  - Complication associated with device [Not Recovered/Not Resolved]
  - Shoulder operation [Unknown]
  - Joint adhesion [Unknown]
  - Device dislocation [Not Recovered/Not Resolved]
  - Cervical dysplasia [Unknown]
  - Overdose [Unknown]
  - Incorrect drug administration duration [Unknown]
  - Implant site pain [Unknown]

NARRATIVE: CASE EVENT DATE: 2015
